FAERS Safety Report 4310778-3 (Version None)
Quarter: 2004Q1

REPORT INFORMATION
  Report Type: 
  Country: None (occurrence: None)
  Receive Date: 20040303
  Receipt Date: 20040223
  Transmission Date: 20041129
  Serious: Yes (Hospitalization)
  Sender: FDA-Public Use
  Company Number: WAES 0402SGP00004

PATIENT
  Age: 91 Year
  Sex: Male

DRUGS (2)
  1. [THERAPY UNSPECIFIED] [Concomitant]
     Indication: CHRONIC OBSTRUCTIVE AIRWAYS DISEASE
  2. VIOXX [Suspect]
     Indication: CHEST PAIN
     Route: 048
     Dates: end: 20040101

REACTIONS (4)
  - DIALYSIS [None]
  - OXYGEN SATURATION DECREASED [None]
  - PNEUMONIA STAPHYLOCOCCAL [None]
  - RENAL FAILURE ACUTE [None]
